FAERS Safety Report 5917700-4 (Version None)
Quarter: 2008Q4

REPORT INFORMATION
  Report Type: 
  Country: None (occurrence: None)
  Receive Date: 20081009
  Receipt Date: 20081006
  Transmission Date: 20090506
  Serious: Yes (Life-Threatening, Other)
  Sender: FDA-Public Use
  Company Number: ADE2008-0329

PATIENT
  Age: 44 Year
  Sex: Male

DRUGS (6)
  1. PENICILLIN VK [Suspect]
     Indication: INFECTION
     Dosage: 600 MG-QID-PO
     Route: 048
  2. PENICILLIN G [Suspect]
     Indication: INFECTION
     Dosage: 3 MU Q4H IVRS
     Route: 042
  3. HUMULIN R [Concomitant]
  4. HUMULIN N [Concomitant]
  5. GENTAMICIN [Concomitant]
  6. CLINDAMYCIN HCL [Concomitant]

REACTIONS (10)
  - ARTERIAL HAEMORRHAGE [None]
  - DYSURIA [None]
  - HAEMORRHAGE [None]
  - HYPOTENSION [None]
  - NECROTISING FASCIITIS [None]
  - PROCEDURAL HYPOTENSION [None]
  - RESPIRATORY RATE INCREASED [None]
  - SCROTAL ULCER [None]
  - STREPTOCOCCAL INFECTION [None]
  - TESTICULAR PAIN [None]
